FAERS Safety Report 21949483 (Version 4)
Quarter: 2024Q3

REPORT INFORMATION
  Report Type: Spontaneous
  Country: US (occurrence: US)
  Receive Date: 20230203
  Receipt Date: 20240822
  Transmission Date: 20241017
  Serious: Yes (Other)
  Sender: SANOFI AVENTIS
  Company Number: US-SA-SAC20230202000948

PATIENT
  Age: 18 Year
  Sex: Male

DRUGS (8)
  1. ELOCTATE [Suspect]
     Active Substance: EFMOROCTOCOG ALFA
     Indication: Haemorrhage
     Dosage: 1880 U(+/-10%), QW
     Route: 065
  2. ELOCTATE [Suspect]
     Active Substance: EFMOROCTOCOG ALFA
     Indication: Haemorrhage
     Dosage: 1880 U(+/-10%), QW
     Route: 065
  3. ELOCTATE [Suspect]
     Active Substance: EFMOROCTOCOG ALFA
     Dosage: 1880 U (+/-10%), PRN
     Route: 065
  4. ELOCTATE [Suspect]
     Active Substance: EFMOROCTOCOG ALFA
     Dosage: 1880 U (+/-10%), PRN
     Route: 065
  5. ELOCTATE [Suspect]
     Active Substance: EFMOROCTOCOG ALFA
     Dosage: 2000 U (+/-10%), QW
     Route: 042
  6. ELOCTATE [Suspect]
     Active Substance: EFMOROCTOCOG ALFA
     Dosage: 2000 U (+/-10%), QW
     Route: 042
  7. ELOCTATE [Suspect]
     Active Substance: EFMOROCTOCOG ALFA
     Dosage: 2000 U (+/-10%), EVERY 24 HOURS AS NEEDED (PRN)
     Route: 042
  8. ELOCTATE [Suspect]
     Active Substance: EFMOROCTOCOG ALFA
     Dosage: 2000 U (+/-10%), EVERY 24 HOURS AS NEEDED (PRN)
     Route: 042

REACTIONS (5)
  - Haemorrhage [Recovered/Resolved]
  - Renal haemorrhage [Unknown]
  - Limb injury [Unknown]
  - Haemorrhage [Not Recovered/Not Resolved]
  - Product dose omission issue [Not Recovered/Not Resolved]

NARRATIVE: CASE EVENT DATE: 20230123
